FAERS Safety Report 18866666 (Version 1)
Quarter: 2021Q1

REPORT INFORMATION
  Report Type: Spontaneous
  Country: US (occurrence: US)
  Receive Date: 20210209
  Receipt Date: 20210209
  Transmission Date: 20210420
  Serious: Yes (Hospitalization, Other)
  Sender: FDA-Public Use
  Company Number: None

PATIENT
  Age: 81 Year
  Sex: Female
  Weight: 76.5 kg

DRUGS (1)
  1. LEVOFLOXACIN 750 MG [Suspect]
     Active Substance: LEVOFLOXACIN
     Indication: URINARY TRACT INFECTION
     Dosage: ?          QUANTITY:5 TABLET(S);?
     Dates: start: 20210101, end: 20210106

REACTIONS (3)
  - Pain in extremity [None]
  - Dysphemia [None]
  - Gait inability [None]

NARRATIVE: CASE EVENT DATE: 20210101
